FAERS Safety Report 9705181 (Version 2)
Quarter: 2014Q1

REPORT INFORMATION
  Report Type: Spontaneous
  Country: US (occurrence: US)
  Receive Date: 20131122
  Receipt Date: 20140108
  Transmission Date: 20141002
  Serious: No
  Sender: FDA-Public Use
  Company Number: US-009507513-1311USA009615

PATIENT
  Age: 71 Year
  Sex: Female
  Weight: 107.48 kg

DRUGS (2)
  1. OXYTROL FOR WOMEN [Suspect]
     Indication: URINARY INCONTINENCE
     Dosage: UNK, UNKNOWN
     Route: 062
     Dates: start: 20131004
  2. OXYTROL FOR WOMEN [Suspect]
     Indication: HYPERTONIC BLADDER

REACTIONS (1)
  - Drug effect decreased [Unknown]
